FAERS Safety Report 10432434 (Version 1)
Quarter: 2014Q3

REPORT INFORMATION
  Report Type: Spontaneous
  Country: US (occurrence: None)
  Receive Date: 20140815
  Receipt Date: 20140815
  Transmission Date: 20150326
  Serious: No
  Sender: FDA-Public Use
  Company Number: A-NJ2014-99398

PATIENT
  Age: 66 Year
  Sex: Female

DRUGS (3)
  1. OPSUMIT [Suspect]
     Active Substance: MACITENTAN
     Indication: PULMONARY ARTERIAL HYPERTENSION
     Route: 048
     Dates: start: 20140225
  2. ASPIRIN (ACETYLSALICYLIC ACID) [Concomitant]
     Active Substance: ASPIRIN
  3. TYVASO (TREPROSTINIL SODIUM) [Concomitant]

REACTIONS (9)
  - Influenza like illness [None]
  - Chest pain [None]
  - Discomfort [None]
  - Pain [None]
  - Cough [None]
  - Oropharyngeal pain [None]
  - Pyrexia [None]
  - Headache [None]
  - Malaise [None]
